FAERS Safety Report 4877330-2 (Version None)
Quarter: 2006Q1

REPORT INFORMATION
  Report Type: 
  Country: None (occurrence: None)
  Receive Date: 20060109
  Receipt Date: 20051222
  Transmission Date: 20060701
  Serious: Yes (Death)
  Sender: FDA-Public Use
  Company Number: 2005002433

PATIENT
  Age: 67 Year
  Sex: Male

DRUGS (3)
  1. ERLOTINIB HCL (TABLET) [Suspect]
     Indication: NON-SMALL CELL LUNG CANCER
     Dosage: 150 MG (QD), ORAL
     Route: 048
     Dates: start: 20051207, end: 20051212
  2. KETOPROFEN [Suspect]
     Dosage: UNK
     Route: 065
     Dates: start: 20051027
  3. STEROIDS [Suspect]
     Dosage: UNK
     Route: 065
     Dates: start: 20051027

REACTIONS (1)
  - GASTROINTESTINAL PERFORATION [None]
